FAERS Safety Report 6046126-0 (Version None)
Quarter: 2009Q1

REPORT INFORMATION
  Report Type: 
  Country: None (occurrence: None)
  Receive Date: 20090122
  Receipt Date: 20090115
  Transmission Date: 20090719
  Serious: Yes (Other)
  Sender: FDA-Public Use
  Company Number: CA-ASTRAZENECA-2009UW01504

PATIENT
  Age: 44 Year
  Sex: Female
  Weight: 59 kg

DRUGS (3)
  1. CRESTOR [Suspect]
     Route: 048
  2. CRESTOR [Interacting]
     Route: 048
  3. PINK GRAPEFRUIT [Interacting]
     Dosage: .5 DF EVERY DAY

REACTIONS (9)
  - BACK PAIN [None]
  - CHROMATURIA [None]
  - FATIGUE [None]
  - FOOD INTERACTION [None]
  - MUSCULOSKELETAL PAIN [None]
  - MYALGIA [None]
  - NECK PAIN [None]
  - PAIN IN EXTREMITY [None]
  - URTICARIA [None]
